FAERS Safety Report 7242503-0 (Version None)
Quarter: 2011Q1

REPORT INFORMATION
  Report Type: 
  Country: None (occurrence: None)
  Receive Date: 20110125
  Receipt Date: 20110119
  Transmission Date: 20110831
  Serious: Yes (Hospitalization)
  Sender: FDA-Public Use
  Company Number: DE-AMGEN-DEUCT2010010931

PATIENT
  Age: 27 Year
  Sex: Female

DRUGS (3)
  1. ETANERCEPT [Suspect]
     Dosage: 50 MG, QWK
     Dates: start: 20100101
  2. SULFASALAZINE [Concomitant]
     Dosage: 2000 MG, UNK
  3. ETANERCEPT [Suspect]
     Indication: ANKYLOSING SPONDYLITIS
     Dosage: 50 MG, QWK
     Dates: start: 20100601, end: 20100101

REACTIONS (2)
  - DIARRHOEA [None]
  - INTESTINAL FISTULA [None]
